FAERS Safety Report 20506746 (Version 1)
Quarter: 2022Q1

REPORT INFORMATION
  Report Type: Report from Study
  Country: BR (occurrence: BR)
  Receive Date: 20220223
  Receipt Date: 20220223
  Transmission Date: 20220423
  Serious: Yes (Other)
  Sender: FDA-Public Use
  Company Number: BR-NOVARTISPH-NVSC2022BR039003

PATIENT
  Age: 54 Year
  Sex: Female

DRUGS (3)
  1. GILENYA [Suspect]
     Active Substance: FINGOLIMOD HYDROCHLORIDE
     Indication: Multiple sclerosis
     Dosage: UNK
     Route: 065
     Dates: start: 201909, end: 20220107
  2. CELEBRA [Concomitant]
     Active Substance: CELECOXIB
     Indication: Arthritis
     Dosage: 50 MG, BID
     Route: 065
  3. PREGABALIN [Concomitant]
     Active Substance: PREGABALIN
     Indication: Fibromyalgia
     Dosage: 75 MG, BID
     Route: 065

REACTIONS (17)
  - Nephrolithiasis [Unknown]
  - Blood pressure increased [Recovering/Resolving]
  - Multiple sclerosis relapse [Unknown]
  - Pain [Unknown]
  - Fatigue [Not Recovered/Not Resolved]
  - Abdominal pain [Not Recovered/Not Resolved]
  - Amnesia [Unknown]
  - Dizziness [Not Recovered/Not Resolved]
  - Eye pain [Recovering/Resolving]
  - Groin pain [Not Recovered/Not Resolved]
  - Confusional state [Not Recovered/Not Resolved]
  - Influenza [Recovered/Resolved]
  - Hepatic steatosis [Unknown]
  - Pain [Recovered/Resolved]
  - Sinusitis [Unknown]
  - Headache [Not Recovered/Not Resolved]
  - Pain in extremity [Not Recovered/Not Resolved]

NARRATIVE: CASE EVENT DATE: 20211101
